FAERS Safety Report 18908744 (Version 1)
Quarter: 2021Q1

REPORT INFORMATION
  Report Type: Spontaneous
  Country: CN (occurrence: CN)
  Receive Date: 20210218
  Receipt Date: 20210218
  Transmission Date: 20210420
  Serious: Yes (Hospitalization)
  Sender: FDA-Public Use
  Company Number: ALC2021CN001236

PATIENT
  Age: 41 Year
  Sex: Male

DRUGS (2)
  1. FLUORESCITE [Suspect]
     Active Substance: FLUORESCEIN SODIUM
     Indication: FUNDOSCOPY
     Dosage: 5.000000 ML, QD
     Route: 042
     Dates: start: 20210206, end: 20210206
  2. INDOCYANINE GREEN. [Concomitant]
     Active Substance: INDOCYANINE GREEN
     Indication: FUNDOSCOPY
     Dosage: 25.000000 MG, QD
     Route: 042
     Dates: start: 20210206, end: 20210206

REACTIONS (3)
  - Palpitations [Recovering/Resolving]
  - Chest discomfort [Recovering/Resolving]
  - Hypoaesthesia [Recovering/Resolving]

NARRATIVE: CASE EVENT DATE: 20210206
